FAERS Safety Report 11048174 (Version 2)
Quarter: 2015Q2

REPORT INFORMATION
  Report Type: Report from Study
  Country: US (occurrence: US)
  Receive Date: 20150420
  Receipt Date: 20150430
  Transmission Date: 20150821
  Serious: Yes (Hospitalization)
  Sender: FDA-Public Use
  Company Number: US-ACTELION-A-US2015-116284

PATIENT
  Age: 55 Year
  Sex: Female

DRUGS (3)
  1. VELETRI [Suspect]
     Active Substance: EPOPROSTENOL
     Dosage: 26.4 NG/KG, PER MIN
     Route: 042
     Dates: start: 20110316
  2. TRACLEER [Concomitant]
     Active Substance: BOSENTAN\BOSENTAN MONOHYDRATE
  3. VELETRI [Suspect]
     Active Substance: EPOPROSTENOL
     Indication: PULMONARY HYPERTENSION
     Dosage: 38.2 UNK, UNK
     Route: 042
     Dates: start: 20110506

REACTIONS (4)
  - Gastrointestinal haemorrhage [Unknown]
  - Disease progression [Unknown]
  - Bacterial test [Unknown]
  - Dehydration [Unknown]
